FAERS Safety Report 26125259 (Version 2)
Quarter: 2025Q4

REPORT INFORMATION
  Report Type: Spontaneous
  Country: US (occurrence: US)
  Receive Date: 20251205
  Receipt Date: 20251211
  Transmission Date: 20260117
  Serious: Yes (Hospitalization, Other)
  Sender: SUNOVION
  Company Number: US-SMPA-2025SPA016337

PATIENT
  Age: 82 Year
  Sex: Male

DRUGS (2)
  1. ORGOVYX [Suspect]
     Active Substance: RELUGOLIX
     Indication: Prostate cancer
     Dosage: 360 MG, SINGLE
     Route: 048
  2. ORGOVYX [Suspect]
     Active Substance: RELUGOLIX
     Dosage: 120 MG, QD
     Route: 048
     Dates: start: 20251128

REACTIONS (11)
  - Mental impairment [Unknown]
  - Device related sepsis [Unknown]
  - Kidney infection [Unknown]
  - Fungal infection [Unknown]
  - Hypotension [Unknown]
  - Drug interaction [Unknown]
  - Urinary tract infection [Unknown]
  - Asthenia [Unknown]
  - Nasopharyngitis [Unknown]
  - Chills [Unknown]
  - Hot flush [Unknown]
